FAERS Safety Report 15517629 (Version 1)
Quarter: 2020Q3

REPORT INFORMATION
  Report Type: Report from Study
  Country: US (occurrence: US)
  Receive Date: 20181017
  Receipt Date: 20181017
  Transmission Date: 20201104
  Serious: Yes (Death, Hospitalization)
  Sender: FDA-Public Use
  Company Number: US-JNJFOC-20171108286

PATIENT
  Age: 74 Year
  Sex: Male
  Weight: 75.4 kg

DRUGS (3)
  1. PCI?32765 [Suspect]
     Active Substance: IBRUTINIB
     Route: 048
  2. DEXAMETHASONE. [Suspect]
     Active Substance: DEXAMETHASONE
     Indication: PLASMA CELL MYELOMA
     Dosage: 43 CYCLES RECEIVED
     Route: 048
     Dates: start: 20160611
  3. PCI?32765 [Suspect]
     Active Substance: IBRUTINIB
     Indication: PLASMA CELL MYELOMA
     Dosage: 43 CYCLES RECEIVED
     Route: 048
     Dates: start: 20160611

REACTIONS (5)
  - Renal failure [Not Recovered/Not Resolved]
  - Pneumonia [Fatal]
  - Respiratory failure [Not Recovered/Not Resolved]
  - Encephalopathy [Not Recovered/Not Resolved]
  - Hypotension [Not Recovered/Not Resolved]

NARRATIVE: CASE EVENT DATE: 20171030
